FAERS Safety Report 18941764 (Version 1)
Quarter: 2021Q1

REPORT INFORMATION
  Report Type: Spontaneous
  Country: FI (occurrence: FI)
  Receive Date: 20210225
  Receipt Date: 20210225
  Transmission Date: 20210420
  Serious: Yes (Other)
  Sender: FDA-Public Use
  Company Number: FI-GLAXOSMITHKLINE-FICH2021008639

PATIENT
  Age: 78 Year
  Sex: Female

DRUGS (1)
  1. VOLTAREN FORTE [Suspect]
     Active Substance: DICLOFENAC SODIUM
     Indication: PAIN IN EXTREMITY
     Dosage: 120 G
     Dates: start: 20210206, end: 20210209

REACTIONS (8)
  - Skin disorder [Recovering/Resolving]
  - Rash pruritic [Recovering/Resolving]
  - Urticaria [Recovering/Resolving]
  - Erythema [Recovering/Resolving]
  - Rash [Recovering/Resolving]
  - Dry skin [Recovering/Resolving]
  - Allergic reaction to excipient [Recovering/Resolving]
  - Poisoning [Unknown]

NARRATIVE: CASE EVENT DATE: 20210209
